FAERS Safety Report 8112786-3 (Version None)
Quarter: 2012Q1

REPORT INFORMATION
  Report Type: 
  Country: None (occurrence: None)
  Receive Date: 20120203
  Receipt Date: 20120131
  Transmission Date: 20120608
  Serious: Yes (Life-Threatening, Hospitalization, Other)
  Sender: FDA-Public Use
  Company Number: FR-BRISTOL-MYERS SQUIBB COMPANY-16352239

PATIENT
  Age: 81 Year
  Sex: Male

DRUGS (11)
  1. IRBESARTAN AND HYDROCHLOROTHIAZIDE [Suspect]
     Indication: HYPERTENSION
     Route: 048
     Dates: end: 20110921
  2. LERCANIDIPINE [Suspect]
     Indication: HYPERTENSION
     Route: 048
     Dates: end: 20110921
  3. NOROXIN [Concomitant]
     Dates: start: 20110913, end: 20110920
  4. POTASSIUM CHLORIDE [Suspect]
     Dosage: 3 DF: 1DF OF DIFFU-K CAPS
     Route: 048
     Dates: end: 20110921
  5. GLUCOPHAGE [Suspect]
     Indication: TYPE 2 DIABETES MELLITUS
     Route: 048
  6. LASIX [Suspect]
     Indication: HYPERTENSION
     Route: 048
     Dates: end: 20110921
  7. PLAVIX [Concomitant]
     Route: 048
     Dates: end: 20110921
  8. ALFUZOSIN HCL [Suspect]
     Route: 048
     Dates: end: 20110921
  9. VITAMIN B1 + B6 [Concomitant]
     Dosage: 1DF: 2DF OF VITAMIN B1 + B6
     Route: 048
     Dates: end: 20110921
  10. EZETIMIBE [Concomitant]
     Route: 048
     Dates: end: 20110921
  11. ATORVASTATIN [Concomitant]
     Route: 048
     Dates: end: 20110921

REACTIONS (7)
  - DEHYDRATION [None]
  - HYPERKALAEMIA [None]
  - OVERDOSE [None]
  - HYPOVOLAEMIC SHOCK [None]
  - RENAL FAILURE ACUTE [None]
  - CEREBROVASCULAR ACCIDENT [None]
  - LACTIC ACIDOSIS [None]
